FAERS Safety Report 6373329-8 (Version None)
Quarter: 2009Q3

REPORT INFORMATION
  Report Type: 
  Country: None (occurrence: None)
  Receive Date: 20090924
  Receipt Date: 20090416
  Transmission Date: 20100115
  Serious: Yes (Hospitalization)
  Sender: FDA-Public Use
  Company Number: US-ASTRAZENECA-2009UW09564

PATIENT
  Sex: Male

DRUGS (2)
  1. SEROQUEL [Suspect]
     Route: 048
     Dates: start: 20090330, end: 20090402
  2. CLOZARIL [Concomitant]
     Dates: end: 20090323

REACTIONS (1)
  - PSYCHOTIC DISORDER [None]
